FAERS Safety Report 12760993 (Version 2)
Quarter: 2016Q4

REPORT INFORMATION
  Report Type: Report from Study
  Country: US (occurrence: US)
  Receive Date: 20160919
  Receipt Date: 20161003
  Transmission Date: 20170207
  Serious: No
  Sender: FDA-Public Use
  Company Number: PHEH2016US023843

PATIENT
  Sex: Male

DRUGS (22)
  1. ROXICODONE [Concomitant]
     Active Substance: OXYCODONE HYDROCHLORIDE
     Indication: PRODUCT USED FOR UNKNOWN INDICATION
     Dosage: 20 MG, UNK
     Route: 065
     Dates: start: 20160805
  2. BACTRIM-SEPTRA [Concomitant]
     Indication: PRODUCT USED FOR UNKNOWN INDICATION
     Dosage: UNK
     Route: 048
     Dates: start: 20160522
  3. ZEBETA [Concomitant]
     Active Substance: BISOPROLOL FUMARATE
     Indication: PRODUCT USED FOR UNKNOWN INDICATION
     Dosage: 10 MG, QD
     Route: 048
     Dates: start: 20141007
  4. LEXAPRO [Concomitant]
     Active Substance: ESCITALOPRAM OXALATE
     Indication: PRODUCT USED FOR UNKNOWN INDICATION
     Dosage: 40 MG, QD (TAKES 40 MG EVERY MORNING)
     Route: 048
  5. NEURONTIN [Concomitant]
     Active Substance: GABAPENTIN
     Indication: PRODUCT USED FOR UNKNOWN INDICATION
     Dosage: 300 MG, TID
     Route: 048
     Dates: start: 20160825
  6. ELOCON [Concomitant]
     Active Substance: MOMETASONE FUROATE
     Indication: PRODUCT USED FOR UNKNOWN INDICATION
     Dosage: APPLY TO AFFECTED AREA, BID
     Route: 065
  7. PROAIR HFA [Concomitant]
     Active Substance: ALBUTEROL SULFATE
     Indication: DYSPNOEA
  8. FLOMAX [Concomitant]
     Active Substance: TAMSULOSIN HYDROCHLORIDE
     Indication: PRODUCT USED FOR UNKNOWN INDICATION
     Dosage: 0.4 MG, QN (APPLY TOPICALLY DAILY)
     Route: 048
     Dates: start: 20150804
  9. ELIQUIS [Concomitant]
     Active Substance: APIXABAN
     Indication: DEEP VEIN THROMBOSIS
     Dosage: UNK
     Route: 065
  10. MYCOSTATIN [Concomitant]
     Active Substance: NYSTATIN
     Indication: PRODUCT USED FOR UNKNOWN INDICATION
     Dosage: 1000 IU, 4 TIMES DAILY
     Route: 065
  11. PROGRAF [Concomitant]
     Active Substance: TACROLIMUS\TACROLIMUS ANHYDROUS
     Indication: PROPHYLAXIS AGAINST TRANSPLANT REJECTION
     Dosage: (2 DF, DAILY )(1 1/2 TAB DAILY)
     Route: 048
  12. MYFORTIC [Suspect]
     Active Substance: MYCOPHENOLATE SODIUM
     Indication: RENAL TRANSPLANT
     Dosage: 3 DF, BID (180MG)
     Route: 048
  13. ELIQUIS [Concomitant]
     Active Substance: APIXABAN
     Indication: PRODUCT USED FOR UNKNOWN INDICATION
     Dosage: 5 MG, BID
     Route: 048
  14. FLONASE [Concomitant]
     Active Substance: FLUTICASONE PROPIONATE
     Indication: PRODUCT USED FOR UNKNOWN INDICATION
     Dosage: 50 UG, QD (2 SPRAY INTO EACH NOSTRIL DAILY)
     Route: 045
  15. DELTASONE [Concomitant]
     Active Substance: PREDNISONE
     Indication: PROPHYLAXIS AGAINST TRANSPLANT REJECTION
     Dosage: TAKE 3 TABLET ONCE A DAY)
     Route: 048
  16. NORVASC [Concomitant]
     Active Substance: AMLODIPINE BESYLATE
     Indication: PRODUCT USED FOR UNKNOWN INDICATION
     Dosage: 5 MG, QD
     Route: 065
     Dates: start: 20160116
  17. CATAPRES [Concomitant]
     Active Substance: CLONIDINE HYDROCHLORIDE
     Indication: PRODUCT USED FOR UNKNOWN INDICATION
     Dosage: 0.1 MG, TID
     Route: 048
  18. HUMALOG [Concomitant]
     Active Substance: INSULIN LISPRO
     Indication: PRODUCT USED FOR UNKNOWN INDICATION
     Dosage: INJECT UPTO 40UNITS TID
     Dates: start: 20160902
  19. LEVEMIR [Concomitant]
     Active Substance: INSULIN DETEMIR
     Indication: PRODUCT USED FOR UNKNOWN INDICATION
     Dosage: 50 U, BID
     Route: 065
     Dates: start: 20160706
  20. INSULIN GLARGINE [Concomitant]
     Active Substance: INSULIN GLARGINE
     Indication: PRODUCT USED FOR UNKNOWN INDICATION
     Dosage: 50 U, BID
     Route: 065
     Dates: start: 20160902
  21. PROTONIX [Concomitant]
     Active Substance: PANTOPRAZOLE SODIUM
     Indication: PRODUCT USED FOR UNKNOWN INDICATION
     Dosage: 40 MG, QD
     Route: 048
  22. PROAIR HFA [Concomitant]
     Active Substance: ALBUTEROL SULFATE
     Indication: WHEEZING
     Dosage: (INHALE 1 PUFF EVERY 4 HOURS AS NEEDED)PRN
     Route: 055
     Dates: start: 20160406

REACTIONS (7)
  - Liver function test increased [Unknown]
  - Accident [Unknown]
  - Blood potassium increased [Recovered/Resolved]
  - Arthralgia [Unknown]
  - Back injury [Unknown]
  - Blood creatinine increased [Not Recovered/Not Resolved]
  - Back pain [Unknown]
